FAERS Safety Report 6807490-5 (Version None)
Quarter: 2010Q2

REPORT INFORMATION
  Report Type: 
  Country: None (occurrence: None)
  Receive Date: 20100629
  Receipt Date: 20081006
  Transmission Date: 20101027
  Serious: No
  Sender: FDA-Public Use
  Company Number: US-PFIZER INC-2008083179

PATIENT
  Sex: Male
  Weight: 90.909 kg

DRUGS (6)
  1. VIAGRA [Suspect]
     Indication: ERECTILE DYSFUNCTION
     Route: 048
     Dates: start: 20080101
  2. WARFARIN [Concomitant]
  3. SIMVASTATIN [Concomitant]
  4. ALL OTHER THERAPEUTIC PRODUCTS [Concomitant]
  5. FINASTERIDE [Concomitant]
  6. NORVASC [Concomitant]

REACTIONS (1)
  - DRUG INEFFECTIVE [None]
